FAERS Safety Report 6818641-0 (Version None)
Quarter: 2010Q3

REPORT INFORMATION
  Report Type: 
  Country: None (occurrence: None)
  Receive Date: 20100706
  Receipt Date: 20081114
  Transmission Date: 20110219
  Serious: No
  Sender: FDA-Public Use
  Company Number: US-PFIZER INC-2008097044

PATIENT

DRUGS (2)
  1. ZITHROMAX [Suspect]
     Indication: SINUSITIS
  2. ZITHROMAX [Suspect]
     Indication: NASOPHARYNGITIS

REACTIONS (7)
  - ALOPECIA [None]
  - DRUG INEFFECTIVE [None]
  - FATIGUE [None]
  - PAIN [None]
  - PALPITATIONS [None]
  - THERAPEUTIC RESPONSE UNEXPECTED [None]
  - VISUAL IMPAIRMENT [None]
